FAERS Safety Report 11990827 (Version 3)
Quarter: 2016Q2

REPORT INFORMATION
  Report Type: Spontaneous
  Country: US (occurrence: US)
  Receive Date: 20160202
  Receipt Date: 20160510
  Transmission Date: 20160815
  Serious: No
  Sender: FDA-Public Use
  Company Number: US-ACTELION PHARMACEUTICALS US, INC.-A-NJ2016-130676

PATIENT
  Age: 66 Year
  Sex: Female

DRUGS (2)
  1. VALCHLOR [Suspect]
     Active Substance: MECHLORETHAMINE
     Dosage: UNK, EVERY OTHER DAY
     Route: 061
     Dates: start: 20151022
  2. VALCHLOR [Suspect]
     Active Substance: MECHLORETHAMINE
     Indication: MYCOSIS FUNGOIDES
     Dosage: UNK, QD
     Route: 061
     Dates: start: 20151022

REACTIONS (7)
  - Application site exfoliation [Not Recovered/Not Resolved]
  - Pruritus [Unknown]
  - Application site discolouration [Unknown]
  - Application site pain [Unknown]
  - Rash pruritic [Unknown]
  - Rash papular [Unknown]
  - Skin irritation [Not Recovered/Not Resolved]
